FAERS Safety Report 17604590 (Version 1)
Quarter: 2020Q1

REPORT INFORMATION
  Report Type: Spontaneous
  Country: US (occurrence: US)
  Receive Date: 20200331
  Receipt Date: 20200331
  Transmission Date: 20200409
  Serious: Yes (Other)
  Sender: FDA-Public Use
  Company Number: US-PFIZER INC-2020132104

PATIENT
  Age: 80 Year
  Sex: Female
  Weight: 73.3 kg

DRUGS (2)
  1. XELJANZ XR [Suspect]
     Active Substance: TOFACITINIB CITRATE
     Indication: RHEUMATOID ARTHRITIS
     Dosage: 11 MG, 1X/DAY(11MG, TABLET, ONCE DAILY)
     Route: 048
     Dates: start: 20190821
  2. CLARITIN-D NOS [Concomitant]
     Active Substance: LORATADINE\PSEUDOEPHEDRINE SULFATE
     Dosage: UNK

REACTIONS (3)
  - Tibia fracture [Unknown]
  - Osteolysis [Unknown]
  - Hip fracture [Unknown]

NARRATIVE: CASE EVENT DATE: 201908
